FAERS Safety Report 6688266-9 (Version None)
Quarter: 2010Q2

REPORT INFORMATION
  Report Type: 
  Country: None (occurrence: None)
  Receive Date: 20100420
  Receipt Date: 20100413
  Transmission Date: 20101027
  Serious: No
  Sender: FDA-Public Use
  Company Number: BR-ROCHE-649126

PATIENT
  Sex: Female
  Weight: 3.2 kg

DRUGS (3)
  1. ROACUTAN [Suspect]
     Indication: DRUG USE FOR UNKNOWN INDICATION
     Route: 064
     Dates: start: 20040101, end: 20050101
  2. ROACUTAN [Suspect]
     Route: 064
     Dates: start: 20060101, end: 20060101
  3. TAMIFLU [Suspect]
     Indication: H1N1 INFLUENZA
     Dosage: TOOK 4 DOSES OF 75 MG
     Route: 064
     Dates: start: 20090101, end: 20090101

REACTIONS (2)
  - NO ADVERSE EVENT [None]
  - NORMAL NEWBORN [None]
